FAERS Safety Report 23897302 (Version 1)
Quarter: 2024Q2

REPORT INFORMATION
  Report Type: Spontaneous
  Country: US (occurrence: US)
  Receive Date: 20240524
  Receipt Date: 20240524
  Transmission Date: 20240716
  Serious: Yes (Other)
  Sender: FDA-Public Use
  Company Number: US-BIOVITRUM-2024-US-007519

PATIENT
  Age: 29 Year
  Sex: Female

DRUGS (2)
  1. ANAKINRA [Suspect]
     Active Substance: ANAKINRA
     Indication: Still^s disease
     Dosage: DAILY
     Route: 058
  2. ANAKINRA [Suspect]
     Active Substance: ANAKINRA
     Indication: Haemophagocytic lymphohistiocytosis

REACTIONS (6)
  - Off label use [Recovered/Resolved]
  - Drug-induced liver injury [Recovering/Resolving]
  - Exposure during pregnancy [Recovered/Resolved]
  - Neutropenia [Recovering/Resolving]
  - Still^s disease [Unknown]
  - Condition aggravated [Unknown]
